FAERS Safety Report 9046224 (Version 1)
Quarter: 2013Q1

REPORT INFORMATION
  Report Type: Spontaneous
  Country: GB (occurrence: GB)
  Receive Date: 20130201
  Receipt Date: 20130201
  Transmission Date: 20140127
  Serious: Yes (Death)
  Sender: FDA-Public Use
  Company Number: PHHY2013GB008262

PATIENT
  Sex: 0

DRUGS (1)
  1. DEFEROXAMINE [Suspect]
     Indication: IRON OVERLOAD
     Dosage: 50 TO 60 MG/KG/DAY FOR 8 TO 12 HRS
     Route: 058

REACTIONS (1)
  - Meningitis [Fatal]
